FAERS Safety Report 16439910 (Version 1)
Quarter: 2019Q2

REPORT INFORMATION
  Report Type: Spontaneous
  Country: BE (occurrence: BE)
  Receive Date: 20190617
  Receipt Date: 20190617
  Transmission Date: 20190711
  Serious: Yes (Death, Other)
  Sender: FDA-Public Use
  Company Number: BE-009507513-1906BEL004653

PATIENT
  Age: 82 Year
  Sex: Female

DRUGS (2)
  1. KEYTRUDA [Suspect]
     Active Substance: PEMBROLIZUMAB
     Dosage: UNK
     Dates: start: 20190528
  2. KEYTRUDA [Suspect]
     Active Substance: PEMBROLIZUMAB
     Dosage: 200 MILLIGRAM, EVERY THREE WEEKS
     Dates: start: 201811

REACTIONS (3)
  - Burns fourth degree [Fatal]
  - Skin exfoliation [Fatal]
  - Rash generalised [Fatal]

NARRATIVE: CASE EVENT DATE: 201906
